FAERS Safety Report 4798137-0 (Version None)
Quarter: 2005Q4

REPORT INFORMATION
  Report Type: 
  Country: None (occurrence: None)
  Receive Date: 20051011
  Receipt Date: 20050927
  Transmission Date: 20060501
  Serious: Yes (Life-Threatening, Hospitalization)
  Sender: FDA-Public Use
  Company Number: 2005PV002233

PATIENT
  Age: 67 Year
  Sex: Male
  Weight: 112.4921 kg

DRUGS (20)
  1. BYETTA [Suspect]
     Indication: DIABETES MELLITUS NON-INSULIN-DEPENDENT
     Dosage: 5 MCG; BID; SC
     Route: 058
     Dates: start: 20050809, end: 20050821
  2. HUMALOG [Concomitant]
  3. LANTUS [Concomitant]
  4. ASPIRIN [Concomitant]
  5. ZYERTEC [Concomitant]
  6. VITAMIN B-12 [Concomitant]
  7. ARTIFICIAL TEARS [Concomitant]
  8. FLOMAX [Concomitant]
  9. FAMOTIDINE [Concomitant]
  10. TOPROL-XL [Concomitant]
  11. ZOCOR [Concomitant]
  12. WARFARIN [Concomitant]
  13. ZETIA [Concomitant]
  14. CIALS ^LILLY^ [Concomitant]
  15. GLUCOPHAGE [Concomitant]
  16. LASIX [Concomitant]
  17. VYTORIN [Concomitant]
  18. COREG [Concomitant]
  19. PREVACID [Concomitant]
  20. PLAVIX [Concomitant]

REACTIONS (2)
  - CORONARY ARTERY DISEASE [None]
  - MYOCARDIAL INFARCTION [None]
